FAERS Safety Report 22314955 (Version 1)
Quarter: 2023Q2

REPORT INFORMATION
  Report Type: Spontaneous
  Country: US (occurrence: None)
  Receive Date: 20230511
  Receipt Date: 20230511
  Transmission Date: 20230722
  Serious: Yes (Other)
  Sender: FDA-Public Use
  Company Number: None

PATIENT
  Age: 5 Year
  Sex: Male
  Weight: 19.35 kg

DRUGS (1)
  1. PREDNISOLONE [Suspect]
     Active Substance: PREDNISOLONE
     Indication: Croup infectious
     Dosage: OTHER QUANTITY : 10 TEASPOON(S);?FREQUENCY : DAILY;?
     Route: 048
     Dates: start: 20230424, end: 20230425

REACTIONS (2)
  - Wheezing [None]
  - Vomiting [None]

NARRATIVE: CASE EVENT DATE: 20230425
